FAERS Safety Report 8318911-3 (Version None)
Quarter: 2012Q2

REPORT INFORMATION
  Report Type: 
  Country: None (occurrence: None)
  Receive Date: 20120427
  Receipt Date: 20120416
  Transmission Date: 20120825
  Serious: Yes (Hospitalization)
  Sender: FDA-Public Use
  Company Number: JP-ASTRAZENECA-2012SE22679

PATIENT
  Age: 23539 Day
  Sex: Male

DRUGS (6)
  1. INTRALIPOS 10% [Concomitant]
     Dates: end: 20110616
  2. MEROPENEM [Suspect]
     Indication: FEBRILE NEUTROPENIA
     Route: 042
     Dates: start: 20110615, end: 20110616
  3. TRANSAMINE CAP [Concomitant]
     Dates: end: 20110615
  4. TPN ELECTROLYTES IN PLASTIC CONTAINER [Concomitant]
  5. ADONA [Concomitant]
     Dates: end: 20110615
  6. PENTAZOCINE LACTATE [Concomitant]

REACTIONS (3)
  - CHOLESTASIS [None]
  - LIVER DISORDER [None]
  - JAUNDICE [None]
